FAERS Safety Report 5092456-9 (Version None)
Quarter: 2006Q3

REPORT INFORMATION
  Report Type: 
  Country: None (occurrence: None)
  Receive Date: 20060825
  Receipt Date: 20060815
  Transmission Date: 20061208
  Serious: Yes (Other)
  Sender: FDA-Public Use
  Company Number: 2006099289

PATIENT
  Sex: Female
  Weight: 68.0396 kg

DRUGS (5)
  1. LIPITOR [Suspect]
     Indication: BLOOD CHOLESTEROL
  2. ALL OTHER THERAPEUTIC PRODUCTS (ALL OTHER THERAPEUTIC PRODUCTS) [Concomitant]
  3. ISOXSUPRINE (ISOXSUPRINE) [Concomitant]
  4. PLAVIX [Concomitant]
  5. IMDUR [Concomitant]

REACTIONS (3)
  - BACK DISORDER [None]
  - BACK PAIN [None]
  - MUSCLE DISORDER [None]
